FAERS Safety Report 4605807-3 (Version None)
Quarter: 2005Q1

REPORT INFORMATION
  Report Type: 
  Country: None (occurrence: None)
  Receive Date: 20050311
  Receipt Date: 20050302
  Transmission Date: 20050727
  Serious: Yes (Hospitalization)
  Sender: FDA-Public Use
  Company Number: FR-BRISTOL-MYERS SQUIBB COMPANY-12892931

PATIENT
  Age: 60 Year
  Sex: Female
  Weight: 94 kg

DRUGS (10)
  1. ELISOR TABS [Suspect]
     Route: 048
  2. DIAFUSOR [Suspect]
  3. ASPEGIC 325 [Suspect]
     Indication: ARTERIAL STENOSIS
     Dates: start: 20030701
  4. CORDARONE [Suspect]
  5. LASILIX [Suspect]
  6. AMLOR [Suspect]
  7. KARDEGIC [Concomitant]
     Dosage: DURATION OF THERAPY: SINCE 2003 OR 2004
  8. OMEPRAZOLE [Concomitant]
  9. XANAX [Concomitant]
  10. ATARAX [Concomitant]

REACTIONS (3)
  - CYANOSIS [None]
  - EOSINOPHILIA [None]
  - RETINAL VASCULAR DISORDER [None]
